FAERS Safety Report 16001151 (Version 1)
Quarter: 2019Q1

REPORT INFORMATION
  Report Type: Spontaneous
  Country: US (occurrence: US)
  Receive Date: 20190225
  Receipt Date: 20190225
  Transmission Date: 20190418
  Serious: No
  Sender: FDA-Public Use
  Company Number: US-AMNEAL PHARMACEUTICALS-2018AMN00821

PATIENT
  Age: 12 Year
  Sex: Male
  Weight: 38.55 kg

DRUGS (1)
  1. METHYLPHENIDATE HYDROCHLORIDE. [Suspect]
     Active Substance: METHYLPHENIDATE HYDROCHLORIDE
     Indication: ATTENTION DEFICIT/HYPERACTIVITY DISORDER
     Dosage: 54 MG DAILY
     Route: 065
     Dates: start: 20181008

REACTIONS (5)
  - Disturbance in attention [Unknown]
  - Mood altered [Unknown]
  - Irritability [Unknown]
  - Abnormal behaviour [Unknown]
  - Product substitution issue [Unknown]

NARRATIVE: CASE EVENT DATE: 20181008
